FAERS Safety Report 20954936 (Version 1)
Quarter: 2022Q2

REPORT INFORMATION
  Report Type: Spontaneous
  Country: IE (occurrence: IE)
  Receive Date: 20220614
  Receipt Date: 20220614
  Transmission Date: 20220721
  Serious: Yes (Hospitalization)
  Sender: FDA-Public Use
  Company Number: IE-SUN PHARMACEUTICAL INDUSTRIES LTD-2022R1-340221

PATIENT
  Sex: Female
  Weight: 2.23 kg

DRUGS (2)
  1. CLARITHROMYCIN [Suspect]
     Active Substance: CLARITHROMYCIN
     Indication: Product used for unknown indication
     Dosage: 500 MILLIGRAM, BID
     Route: 064
  2. CEFUROXIME [Suspect]
     Active Substance: CEFUROXIME
     Indication: Product used for unknown indication
     Dosage: 1.5 GRAM, TID
     Route: 064

REACTIONS (3)
  - Premature baby [Not Recovered/Not Resolved]
  - Low birth weight baby [Unknown]
  - Foetal exposure during pregnancy [Unknown]
